FAERS Safety Report 18629445 (Version 1)
Quarter: 2020Q4

REPORT INFORMATION
  Report Type: Report from Study
  Country: GB (occurrence: GB)
  Receive Date: 20201217
  Receipt Date: 20201217
  Transmission Date: 20210114
  Serious: Yes (Life-Threatening, Hospitalization, Other)
  Sender: FDA-Public Use
  Company Number: GB-BRISTOL-MYERS SQUIBB COMPANY-BMS-2020-101745

PATIENT
  Age: 66 Year
  Sex: Female

DRUGS (6)
  1. COLECALCIFEROL [Concomitant]
     Active Substance: CHOLECALCIFEROL
     Indication: VITAMIN D DEFICIENCY
     Dosage: 2000 UNIT, QD
     Route: 048
     Dates: start: 20021112
  2. NIVOLUMAB [Suspect]
     Active Substance: NIVOLUMAB
     Indication: SQUAMOUS CELL CARCINOMA OF THE ORAL CAVITY
     Dosage: 240 MILLIGRAM
     Route: 042
     Dates: start: 20201005
  3. HUMULIN L [Concomitant]
     Active Substance: INSULIN HUMAN
     Indication: TYPE 2 DIABETES MELLITUS
     Dosage: 38 UNIT AM, 10UNIT PM
     Route: 058
     Dates: start: 20201112
  4. OMEPRAZOLE. [Concomitant]
     Active Substance: OMEPRAZOLE
     Indication: GASTRIC DISORDER
     Dosage: 40 MILLIGRAM, BID
     Route: 048
     Dates: start: 20201112
  5. CODEINE [Concomitant]
     Active Substance: CODEINE
     Indication: TUMOUR PAIN
     Dosage: 30 MILLIGRAM, QD
     Route: 048
     Dates: start: 20201112
  6. CALCIUM CARBONATE. [Concomitant]
     Active Substance: CALCIUM CARBONATE
     Indication: BLOOD CALCIUM DECREASED
     Dosage: 7.5 GRAM, BID
     Route: 048
     Dates: start: 20201112

REACTIONS (1)
  - Toxic epidermal necrolysis [Recovering/Resolving]

NARRATIVE: CASE EVENT DATE: 20201117
